FAERS Safety Report 9825839 (Version 1)
Quarter: 2014Q1

REPORT INFORMATION
  Report Type: Spontaneous
  Country: US (occurrence: None)
  Receive Date: 20140116
  Receipt Date: 20140116
  Transmission Date: 20141002
  Serious: Yes (Other)
  Sender: FDA-Public Use
  Company Number: None

PATIENT
  Sex: 0

DRUGS (2)
  1. PROGRAF [Suspect]
     Indication: HEART TRANSPLANT
     Route: 048
     Dates: start: 20040728
  2. PROGRAF [Suspect]
     Route: 048
     Dates: start: 20040728

REACTIONS (4)
  - Product substitution issue [None]
  - Therapeutic response unexpected with drug substitution [None]
  - Transplant rejection [None]
  - Treatment failure [None]
